FAERS Safety Report 26126938 (Version 3)
Quarter: 2025Q4

REPORT INFORMATION
  Report Type: Spontaneous
  Country: US (occurrence: US)
  Receive Date: 20251205
  Receipt Date: 20251216
  Transmission Date: 20260118
  Serious: No
  Sender: ABBVIE
  Company Number: US-ABBVIE-6573702

PATIENT

DRUGS (1)
  1. LUPRON DEPOT [Suspect]
     Active Substance: LEUPROLIDE ACETATE
     Indication: Breast cancer
     Dosage: NDC 0074-3641-03
     Route: 065

REACTIONS (3)
  - Off label use [Unknown]
  - Needle issue [Unknown]
  - Prescription drug used without a prescription [Unknown]
